FAERS Safety Report 25529401 (Version 1)
Quarter: 2025Q3

REPORT INFORMATION
  Report Type: Spontaneous
  Country: AU (occurrence: AU)
  Receive Date: 20250708
  Receipt Date: 20250708
  Transmission Date: 20251021
  Serious: Yes (Other)
  Sender: PFIZER
  Company Number: AU-BRISTOL-MYERS SQUIBB COMPANY-2025-094319

PATIENT
  Age: 67 Year
  Sex: Female

DRUGS (6)
  1. APIXABAN [Suspect]
     Active Substance: APIXABAN
  2. HEPARIN SODIUM [Suspect]
     Active Substance: HEPARIN SODIUM
  3. ALTEPLASE [Suspect]
     Active Substance: ALTEPLASE
  4. DABIGATRAN ETEXILATE MESYLATE [Suspect]
     Active Substance: DABIGATRAN ETEXILATE MESYLATE
  5. RIVAROXABAN [Suspect]
     Active Substance: RIVAROXABAN
  6. WARFARIN SODIUM [Suspect]
     Active Substance: WARFARIN SODIUM

REACTIONS (2)
  - Amyloidosis [Unknown]
  - Angiopathy [Unknown]
